FAERS Safety Report 13561427 (Version 4)
Quarter: 2018Q2

REPORT INFORMATION
  Report Type: Report from Study
  Country: CA (occurrence: CA)
  Receive Date: 20170518
  Receipt Date: 20180502
  Transmission Date: 20180711
  Serious: Yes (Hospitalization, Other)
  Sender: FDA-Public Use
  Company Number: CA-ROCHE-1935586

PATIENT
  Age: 75 Year
  Sex: Male
  Weight: 70 kg

DRUGS (16)
  1. METHOTREXATE. [Concomitant]
     Active Substance: METHOTREXATE
  2. PREDNISONE. [Concomitant]
     Active Substance: PREDNISONE
     Dosage: SINCE LAST 2-3 MONTHS
     Route: 048
  3. AMLODIPINE [Concomitant]
     Active Substance: AMLODIPINE BESYLATE
     Route: 048
  4. CAD [Concomitant]
     Active Substance: CALCIUM CARBONATE\CHOLECALCIFEROL
  5. METHYLPREDNISOLONE. [Concomitant]
     Active Substance: METHYLPREDNISOLONE
     Route: 042
     Dates: start: 20140417
  6. ACTONEL [Concomitant]
     Active Substance: RISEDRONATE SODIUM
  7. RITUXAN [Suspect]
     Active Substance: RITUXIMAB
     Indication: RHEUMATOID ARTHRITIS
     Route: 042
     Dates: start: 20140417
  8. PLAVIX [Concomitant]
     Active Substance: CLOPIDOGREL BISULFATE
  9. LIPITOR [Concomitant]
     Active Substance: ATORVASTATIN CALCIUM
     Route: 048
  10. ACETAMINOPHEN. [Concomitant]
     Active Substance: ACETAMINOPHEN
     Route: 048
     Dates: start: 20141218
  11. DIPHENHYDRAMINE HCL [Concomitant]
     Active Substance: DIPHENHYDRAMINE HYDROCHLORIDE
     Route: 048
     Dates: start: 20140417
  12. ASA [Concomitant]
     Active Substance: ASPIRIN
     Route: 065
  13. ACETAMINOPHEN. [Concomitant]
     Active Substance: ACETAMINOPHEN
     Route: 048
     Dates: start: 20140417, end: 20141201
  14. METOPROLOL. [Concomitant]
     Active Substance: METOPROLOL
  15. FOLIC ACID. [Concomitant]
     Active Substance: FOLIC ACID
  16. PANTOLOC [Concomitant]
     Active Substance: PANTOPRAZOLE SODIUM
     Route: 048

REACTIONS (15)
  - Cough [Unknown]
  - Temporal arteritis [Not Recovered/Not Resolved]
  - Infection [Unknown]
  - White blood cell count increased [Unknown]
  - Glaucoma [Unknown]
  - Weight decreased [Not Recovered/Not Resolved]
  - Asthenia [Unknown]
  - Transient ischaemic attack [Unknown]
  - Fatigue [Unknown]
  - Rheumatoid arthritis [Unknown]
  - Sepsis [Unknown]
  - Neutrophil count increased [Unknown]
  - Pulse absent [Unknown]
  - Malaise [Not Recovered/Not Resolved]
  - Blood creatinine increased [Unknown]

NARRATIVE: CASE EVENT DATE: 201701
